FAERS Safety Report 7115524-6 (Version None)
Quarter: 2010Q4

REPORT INFORMATION
  Report Type: 
  Country: None (occurrence: None)
  Receive Date: 20101122
  Receipt Date: 20101004
  Transmission Date: 20110411
  Serious: No
  Sender: FDA-Public Use
  Company Number: US-BAYER-201031463NA

PATIENT
  Age: 60 Year
  Sex: Female

DRUGS (2)
  1. CLIMARA PRO [Suspect]
     Indication: HOT FLUSH
     Dosage: PATCH THAT CAME OFF 20 MINUTES AFTER APPLICATION
     Route: 062
     Dates: start: 20090301, end: 20100301
  2. CLIMARA PRO [Suspect]
     Route: 062
     Dates: start: 20100801

REACTIONS (2)
  - FIBROMA [None]
  - UTERINE POLYP [None]
